FAERS Safety Report 24557079 (Version 1)
Quarter: 2024Q4

REPORT INFORMATION
  Report Type: Spontaneous
  Country: US (occurrence: US)
  Receive Date: 20241028
  Receipt Date: 20241028
  Transmission Date: 20250114
  Serious: No
  Sender: ROCHE
  Company Number: US-ROCHE-10000113348

PATIENT
  Age: 54 Year
  Sex: Female
  Weight: 95.25 kg

DRUGS (3)
  1. ACTEMRA [Suspect]
     Active Substance: TOCILIZUMAB
     Indication: Rheumatoid arthritis
     Route: 065
     Dates: start: 202407
  2. APPLE CIDER VINEGAR [Concomitant]
     Active Substance: APPLE CIDER VINEGAR
     Dosage: TAKES 3 GUMMIES AT NIGHT; STARTED BEFORE ACTEMRA
     Route: 048
  3. Beetroot powder [Concomitant]
     Dosage: TAKES 3 CAPSULES AT NIGHT; STARTED BEFORE ACTEMRA
     Route: 048

REACTIONS (4)
  - Product use issue [Unknown]
  - Device issue [Unknown]
  - Device malfunction [Unknown]
  - No adverse event [Unknown]

NARRATIVE: CASE EVENT DATE: 20241015
